FAERS Safety Report 4406651-2 (Version None)
Quarter: 2004Q3

REPORT INFORMATION
  Report Type: 
  Country: None (occurrence: None)
  Receive Date: 20040720
  Receipt Date: 20040705
  Transmission Date: 20050211
  Serious: Yes (Hospitalization)
  Sender: FDA-Public Use
  Company Number: 2004-BP-05354MX (0)

PATIENT
  Age: 51 Year
  Sex: Male

DRUGS (3)
  1. SECOTEX CAPSULES 0.4MG (KA) (TAMSULOSIN HYDROCHLORIDE) [Suspect]
     Indication: BENIGN PROSTATIC HYPERPLASIA
     Dosage: 0.4 MG (0.4 MG, 1 KA O.D.) PO
     Route: 048
     Dates: start: 20030811
  2. SECOTEX CAPSULES 0.4MG (KA) (TAMSULOSIN HYDROCHLORIDE) [Suspect]
     Indication: BLADDER NECK OBSTRUCTION
     Dosage: 0.4 MG (0.4 MG, 1 KA O.D.) PO
     Route: 048
     Dates: start: 20030811
  3. NON SPECIFIED ANTI-INFLAMMATORY DRUGS [Concomitant]

REACTIONS (1)
  - DRUG INEFFECTIVE FOR UNAPPROVED INDICATION [None]
